FAERS Safety Report 8030189-7 (Version None)
Quarter: 2012Q1

REPORT INFORMATION
  Report Type: 
  Country: None (occurrence: None)
  Receive Date: 20120109
  Receipt Date: 20120103
  Transmission Date: 20120608
  Serious: Yes (Death, Other)
  Sender: FDA-Public Use
  Company Number: US-BAYER-200940310NA

PATIENT
  Age: 80 Year
  Sex: Male
  Weight: 79 kg

DRUGS (38)
  1. TRASYLOL [Suspect]
     Indication: CORONARY ARTERY BYPASS
     Dosage: 1 ML, ONCE (INITIAL)
     Route: 042
     Dates: start: 20030902, end: 20030902
  2. HEPARIN [Concomitant]
     Dosage: UNK (TAKEN PRIOR TO SURGERY)
  3. SODIUM BICARBONATE [Concomitant]
     Dosage: 350 MG, TID
     Route: 048
  4. FRESH FROZEN PLASMA [Concomitant]
     Dosage: 2 U, UNK
     Route: 042
     Dates: start: 20030902, end: 20030902
  5. TRASYLOL [Suspect]
     Dosage: 100 ML (LOADING)
     Route: 042
     Dates: start: 20030902, end: 20030902
  6. ESOMEPRAZOLE SODIUM [Concomitant]
     Dosage: 20 MG, QD
     Route: 048
     Dates: start: 20030830
  7. PROTAMINE SULFATE [Concomitant]
     Dosage: 50 MG, UNK
     Route: 042
     Dates: start: 20030902, end: 20030902
  8. METOPROLOL SUCCINATE [Concomitant]
     Dosage: 25 MG, Q6-8HRS
     Route: 048
     Dates: start: 20030830
  9. NITROGLYCERIN [Concomitant]
     Dosage: UNK, (TAKEN PRIOR TO SURGERY)
  10. NITROGLYCERIN [Concomitant]
     Dosage: 0.25-0.5 MCG/KG/MIN
     Route: 042
     Dates: start: 20030902, end: 20030902
  11. DIOVAN [Concomitant]
     Dosage: 160 MG, QD
     Route: 048
  12. OMNIPAQUE 140 [Concomitant]
     Indication: CATHETERISATION CARDIAC
     Dosage: 145 ML, ONCE
     Route: 042
     Dates: start: 20030829, end: 20030829
  13. ROCURONIUM BROMIDE [Concomitant]
     Dosage: 50 MG, UNK
     Dates: start: 20030902, end: 20030902
  14. METOPROLOL SUCCINATE [Concomitant]
     Dosage: 50 MG, BID
     Route: 048
     Dates: end: 20030830
  15. ACETYLSALICYLIC ACID SRT [Concomitant]
     Dosage: 81 MG, QD
     Route: 048
  16. RENAGEL [Concomitant]
     Dosage: 2400 MG, TID
  17. PHENYLEPHRINE HCL [Concomitant]
     Dosage: 120 UNK
     Route: 042
     Dates: start: 20030902, end: 20030902
  18. RED BLOOD CELLS [Concomitant]
     Dosage: 3 U, UNK
     Route: 042
     Dates: start: 20030902, end: 20030902
  19. MAGNESIUM SULFATE [Concomitant]
     Dosage: 2 G, UNK
     Dates: start: 20030902
  20. TRASYLOL [Suspect]
     Dosage: 25 ML/HR (INFUSION)
     Route: 042
     Dates: start: 20030902, end: 20030902
  21. VIOXX [Concomitant]
     Dosage: 25 MG, QD
     Route: 048
  22. CHOLESTYRAMINE [Concomitant]
  23. VITAMIN B COMPLEX CAP [Concomitant]
  24. FENTANYL [Concomitant]
     Dosage: 700 MCG TOTAL
     Route: 042
     Dates: start: 20030902
  25. VERSED [Concomitant]
     Dosage: 6 MG, UNK
     Route: 042
     Dates: start: 20030902
  26. VASOPRESSIN [Concomitant]
     Dosage: 2-4 UNITS/HR
     Route: 042
     Dates: start: 20030902
  27. LEVOPHED [Concomitant]
     Dosage: 0.3-0.5 MCG
     Route: 042
     Dates: start: 20030902
  28. TRASYLOL [Suspect]
     Indication: AORTIC VALVE REPLACEMENT
     Dosage: 200 ML (PUMP PRIME)
     Route: 042
     Dates: start: 20030902, end: 20030902
  29. ASCORBIC ACID [Concomitant]
     Dosage: 500 MG, QD
     Route: 048
     Dates: end: 20030830
  30. LIPITOR [Concomitant]
     Dosage: 10 MG, HS
     Route: 048
     Dates: start: 20030830
  31. PLATELETS [Concomitant]
     Dosage: 1 U, UNK
     Route: 042
     Dates: start: 20030902
  32. ALBUMIN (HUMAN) [Concomitant]
     Dosage: 1 U, UNK
     Dates: start: 20030902
  33. CALCIUM CHLORIDE [Concomitant]
     Dosage: UNK
     Dates: start: 20030902
  34. HEPARIN [Concomitant]
     Dosage: 42000 U, (DURING SURGERY)
     Dates: start: 20030902
  35. NEPHROCAPS [Concomitant]
  36. PROPOFOL [Concomitant]
     Dosage: 2 MCG/KG/MIN
     Route: 042
     Dates: start: 20030902
  37. PRIMACOR [Concomitant]
     Dosage: 0.37 MCG/KG/MIN
     Route: 042
     Dates: start: 20030902
  38. LIDOCAINE [Concomitant]
     Dosage: 100 MG, UNK
     Dates: start: 20030902

REACTIONS (13)
  - RENAL INJURY [None]
  - ANXIETY [None]
  - RENAL FAILURE [None]
  - RENAL IMPAIRMENT [None]
  - STRESS [None]
  - ANHEDONIA [None]
  - INJURY [None]
  - DEATH [None]
  - MULTI-ORGAN FAILURE [None]
  - EMOTIONAL DISTRESS [None]
  - UNEVALUABLE EVENT [None]
  - FEAR [None]
  - PAIN [None]
